FAERS Safety Report 16702440 (Version 1)
Quarter: 2019Q3

REPORT INFORMATION
  Report Type: Spontaneous
  Country: US (occurrence: US)
  Receive Date: 20190813
  Receipt Date: 20190813
  Transmission Date: 20191004
  Serious: Yes (Life-Threatening, Other)
  Sender: FDA-Public Use
  Company Number: None

PATIENT
  Age: 40 Year
  Weight: 74.2 kg

DRUGS (8)
  1. RISPERIDONE 4 MG [Concomitant]
     Dates: start: 20190806
  2. BENZTROPINE 1 MG [Concomitant]
     Active Substance: BENZTROPINE
     Dates: start: 20190806
  3. LORATADINE 10 MG [Concomitant]
     Active Substance: LORATADINE
     Dates: start: 20190809
  4. LAMOTRIGINE. [Suspect]
     Active Substance: LAMOTRIGINE
     Indication: AFFECTIVE DISORDER
     Route: 048
     Dates: start: 20190806, end: 20190813
  5. CALCIUM 600 MG/VITAMIN D3 400 IU [Concomitant]
     Dates: start: 20190808
  6. LEVOTHYROXINE 0.112 MG [Concomitant]
     Dates: start: 20190807
  7. CLONAZEPAM 1 MG [Concomitant]
     Active Substance: CLONAZEPAM
     Dates: start: 20190806
  8. CLOZAPINE 200 MG [Concomitant]
     Active Substance: CLOZAPINE
     Dates: start: 20190812

REACTIONS (2)
  - Rash [None]
  - Drug titration error [None]

NARRATIVE: CASE EVENT DATE: 20190812
